FAERS Safety Report 9628653 (Version 3)
Quarter: 2014Q1

REPORT INFORMATION
  Report Type: Report from Study
  Country: US (occurrence: US)
  Receive Date: 20131017
  Receipt Date: 20140310
  Transmission Date: 20141002
  Serious: Yes (Other)
  Sender: FDA-Public Use
  Company Number: US-VERTEX PHARMACEUTICALS INC-2013-010441

PATIENT
  Age: 64 Year
  Sex: Female
  Weight: 71.2 kg

DRUGS (3)
  1. VX-950 (TELAPREVIR) [Suspect]
     Indication: HEPATITIS C
     Dosage: 750 MG, TID
     Route: 048
     Dates: start: 20131002, end: 20131002
  2. RIBAVIRIN [Suspect]
     Indication: HEPATITIS C
     Dosage: 3 TABS, BID
     Dates: start: 20131005
  3. PEGASYS [Suspect]
     Indication: HEPATITIS C
     Dosage: 180 ?G, QW
     Route: 058
     Dates: start: 20131005

REACTIONS (9)
  - Blister [Unknown]
  - Oral mucosal blistering [Unknown]
  - Stevens-Johnson syndrome [Not Recovered/Not Resolved]
  - Abdominal pain upper [Not Recovered/Not Resolved]
  - Hepatic pain [Not Recovered/Not Resolved]
  - Pyrexia [Recovered/Resolved]
  - Dizziness [Unknown]
  - Vomiting [Not Recovered/Not Resolved]
  - Nausea [Recovered/Resolved]
